FAERS Safety Report 6903827-7 (Version None)
Quarter: 2010Q3

REPORT INFORMATION
  Report Type: 
  Country: None (occurrence: None)
  Receive Date: 20100804
  Receipt Date: 20090114
  Transmission Date: 20110219
  Serious: No
  Sender: FDA-Public Use
  Company Number: US-PFIZER INC-2008082796

PATIENT
  Sex: Male
  Weight: 86.2 kg

DRUGS (12)
  1. LYRICA [Suspect]
     Indication: FIBROMYALGIA
     Dosage: 100 MG, UNK
     Route: 048
     Dates: start: 20070101
  2. COREG [Concomitant]
     Indication: HYPERTENSION
     Dosage: 40 MG, UNK
  3. PANTOPRAZOLE [Concomitant]
  4. MONTELUKAST SODIUM [Concomitant]
     Indication: ASTHMA
  5. ZYRTEC [Concomitant]
     Indication: HYPERSENSITIVITY
  6. BACLOFEN [Concomitant]
     Dosage: 10 MG, 4X/DAY
  7. ANDROGEL [Concomitant]
     Indication: BLOOD TESTOSTERONE DECREASED
  8. LITHIUM CARBONATE [Concomitant]
  9. BUPROPION HYDROCHLORIDE [Concomitant]
  10. ASTELIN [Concomitant]
  11. POLYETHYLENE GLYCOL [Concomitant]
  12. ALL OTHER THERAPEUTIC PRODUCTS [Concomitant]

REACTIONS (14)
  - ABDOMINAL DISCOMFORT [None]
  - DRUG INTOLERANCE [None]
  - GINGIVAL PAIN [None]
  - HYPERSENSITIVITY [None]
  - IRRITABILITY [None]
  - MALAISE [None]
  - MUSCULAR WEAKNESS [None]
  - PAIN [None]
  - PAIN OF SKIN [None]
  - PHOTOSENSITIVITY REACTION [None]
  - RASH [None]
  - REACTION TO COLOURING [None]
  - SLEEP DISORDER [None]
  - STRESS [None]
